FAERS Safety Report 7232577-5 (Version None)
Quarter: 2011Q1

REPORT INFORMATION
  Report Type: 
  Country: None (occurrence: None)
  Receive Date: 20110119
  Receipt Date: 20110119
  Transmission Date: 20110831
  Serious: Yes (Other)
  Sender: FDA-Public Use
  Company Number: CN-PFIZER INC-2011005277

PATIENT

DRUGS (3)
  1. SOLU-MEDROL [Suspect]
     Indication: BRAIN OEDEMA
     Dosage: 80 MG, 2X/DAY
  2. SOLU-MEDROL [Suspect]
     Dosage: 40 MG, 2X/DAY
  3. SOLU-MEDROL [Suspect]
     Dosage: 40 MG, 1X/DAY

REACTIONS (2)
  - BRAIN NEOPLASM [None]
  - NEOPLASM RECURRENCE [None]
